FAERS Safety Report 9129375 (Version 1)
Quarter: 2013Q1

REPORT INFORMATION
  Report Type: Spontaneous
  Country: CH (occurrence: CH)
  Receive Date: 20130125
  Receipt Date: 20130125
  Transmission Date: 20140127
  Serious: Yes (Hospitalization, Other)
  Sender: FDA-Public Use
  Company Number: US-MEDICIS-2013P1000740

PATIENT
  Age: 69 Year
  Sex: Female

DRUGS (6)
  1. METRONIDAZOLE [Suspect]
  2. CIPROFLOXACIN [Concomitant]
     Route: 048
  3. ASPIRIN [Concomitant]
     Indication: ATRIAL FIBRILLATION
  4. FLUPENTIXOL [Concomitant]
  5. MELITRACEN [Concomitant]
  6. ALPRAZOLAM [Concomitant]

REACTIONS (2)
  - Toxic encephalopathy [Recovered/Resolved]
  - Leukocytosis [Unknown]
